FAERS Safety Report 5599557-7 (Version None)
Quarter: 2008Q1

REPORT INFORMATION
  Report Type: 
  Country: None (occurrence: None)
  Receive Date: 20080123
  Receipt Date: 20080110
  Transmission Date: 20080703
  Serious: Yes (Hospitalization, Disabling)
  Sender: FDA-Public Use
  Company Number: US-ASTRAZENECA-2008UW00763

PATIENT
  Age: 934 Month
  Sex: Female

DRUGS (7)
  1. CRESTOR [Suspect]
     Route: 048
     Dates: end: 20071201
  2. ECOTRIN [Concomitant]
  3. BONIVA [Concomitant]
  4. UNIRETIC [Concomitant]
  5. FOLIC ACID [Concomitant]
  6. GLYBURIDE [Concomitant]
  7. METFORMIN HCL [Concomitant]

REACTIONS (3)
  - LIVER FUNCTION TEST [None]
  - RENAL FAILURE ACUTE [None]
  - RHABDOMYOLYSIS [None]
